FAERS Safety Report 10546630 (Version 1)
Quarter: 2014Q4

REPORT INFORMATION
  Report Type: Report from Study
  Country: US (occurrence: US)
  Receive Date: 20141027
  Receipt Date: 20141027
  Transmission Date: 20150529
  Serious: No
  Sender: FDA-Public Use
  Company Number: US-ABBVIE-14P-163-1209917-00

PATIENT

DRUGS (2)
  1. LUPRON DEPOT [Suspect]
     Active Substance: LEUPROLIDE ACETATE
     Indication: ENDOMETRIOSIS
     Dates: start: 2003, end: 2004
  2. RESCUE INHALER [Concomitant]
     Indication: PRODUCT USED FOR UNKNOWN INDICATION
     Route: 055

REACTIONS (4)
  - Vulvovaginal dryness [Recovered/Resolved]
  - Hot flush [Recovered/Resolved]
  - Endometriosis [Unknown]
  - Menstruation irregular [Unknown]

NARRATIVE: CASE EVENT DATE: 2003
